FAERS Safety Report 19072819 (Version 1)
Quarter: 2021Q1

REPORT INFORMATION
  Report Type: Spontaneous
  Country: US (occurrence: US)
  Receive Date: 20210330
  Receipt Date: 20210330
  Transmission Date: 20210420
  Serious: No
  Sender: FDA-Public Use
  Company Number: None

PATIENT
  Sex: Male

DRUGS (1)
  1. INQOVI [Suspect]
     Active Substance: CEDAZURIDINE\DECITABINE

REACTIONS (7)
  - White blood cell count decreased [None]
  - Asthenia [None]
  - Cough [None]
  - Stomatitis [None]
  - Oropharyngeal pain [None]
  - Night sweats [None]
  - Mobility decreased [None]
